FAERS Safety Report 15299668 (Version 1)
Quarter: 2018Q3

REPORT INFORMATION
  Report Type: Report from Study
  Country: JP (occurrence: JP)
  Receive Date: 20180821
  Receipt Date: 20180821
  Transmission Date: 20181010
  Serious: Yes (Disabling)
  Sender: FDA-Public Use
  Company Number: JP-ROCHE-GNE306904

PATIENT
  Age: 83 Year
  Sex: Male

DRUGS (6)
  1. RANIBIZUMAB. [Suspect]
     Active Substance: RANIBIZUMAB
     Dosage: 0.05 ML, QD
     Route: 031
     Dates: start: 20090827, end: 20090827
  2. RANIBIZUMAB. [Suspect]
     Active Substance: RANIBIZUMAB
     Dosage: 0.05 ML, QD
     Route: 031
     Dates: start: 20100204, end: 20100204
  3. CRAVIT [Concomitant]
     Active Substance: LEVOFLOXACIN
     Indication: PRODUCT USED FOR UNKNOWN INDICATION
     Dosage: UNK
     Route: 031
     Dates: start: 200906, end: 201002
  4. RANIBIZUMAB. [Suspect]
     Active Substance: RANIBIZUMAB
     Indication: AGE-RELATED MACULAR DEGENERATION
     Dosage: 0.05 ML, QD
     Route: 031
     Dates: start: 20090604, end: 20100217
  5. RANIBIZUMAB. [Suspect]
     Active Substance: RANIBIZUMAB
     Dosage: 0.05 ML, QD
     Route: 031
     Dates: start: 20090716, end: 20090716
  6. VISUDYNE [Concomitant]
     Active Substance: VERTEPORFIN
     Indication: AGE-RELATED MACULAR DEGENERATION
     Dosage: 1DF, UNK
     Route: 031
     Dates: start: 200806, end: 200902

REACTIONS (4)
  - Visual acuity reduced [Unknown]
  - Vitreous haemorrhage [Not Recovered/Not Resolved]
  - Vitreous opacities [Unknown]
  - Retinal haemorrhage [Not Recovered/Not Resolved]

NARRATIVE: CASE EVENT DATE: 20100217
